FAERS Safety Report 24785527 (Version 1)
Quarter: 2024Q4

REPORT INFORMATION
  Report Type: Spontaneous
  Country: CN (occurrence: CN)
  Receive Date: 20241228
  Receipt Date: 20241228
  Transmission Date: 20250115
  Serious: Yes (Other)
  Sender: ALEXION PHARMACEUTICALS
  Company Number: CN-ASTRAZENECA-202412CHN017633CN

PATIENT
  Age: 59 Year

DRUGS (6)
  1. IMFINZI [Suspect]
     Active Substance: DURVALUMAB
     Indication: Neoplasm
     Dosage: 1.500 GRAM, QD
  2. IMFINZI [Suspect]
     Active Substance: DURVALUMAB
     Dosage: 1.500 GRAM, QD
     Route: 041
  3. IMFINZI [Suspect]
     Active Substance: DURVALUMAB
     Dosage: 1.500 GRAM, QD
  4. IMFINZI [Suspect]
     Active Substance: DURVALUMAB
     Dosage: 1.500 GRAM, QD
     Route: 041
  5. GEMCITABINE HYDROCHLORIDE [Suspect]
     Active Substance: GEMCITABINE HYDROCHLORIDE
     Indication: Neoplasm
     Dosage: 1.600 GRAM, QD
     Route: 041
  6. GEMCITABINE HYDROCHLORIDE [Suspect]
     Active Substance: GEMCITABINE HYDROCHLORIDE
     Dosage: 1.600 GRAM, QD

REACTIONS (1)
  - Myelosuppression [Recovering/Resolving]
